FAERS Safety Report 8607985 (Version 2)
Quarter: 2013Q1

REPORT INFORMATION
  Report Type: Spontaneous
  Country: GB (occurrence: GB)
  Receive Date: 20120611
  Receipt Date: 20130207
  Transmission Date: 20140127
  Serious: Yes (Other)
  Sender: FDA-Public Use
  Company Number: GB-SANOFI-AVENTIS-2012SA038688

PATIENT
  Age: 72 Year
  Sex: Female

DRUGS (4)
  1. MULTAQ [Suspect]
     Indication: ATRIAL FIBRILLATION
     Route: 048
     Dates: start: 20110817, end: 20120821
  2. FUROSEMIDE [Concomitant]
  3. METFORMIN [Concomitant]
  4. RAMIPRIL [Concomitant]

REACTIONS (4)
  - Renal impairment [Recovering/Resolving]
  - Blood creatinine increased [Recovering/Resolving]
  - Fatigue [Unknown]
  - Dyspnoea [Unknown]
